FAERS Safety Report 18220732 (Version 5)
Quarter: 2022Q3

REPORT INFORMATION
  Report Type: Report from Study
  Country: DE (occurrence: DE)
  Receive Date: 20200902
  Receipt Date: 20220822
  Transmission Date: 20221027
  Serious: Yes (Other)
  Sender: FDA-Public Use
  Company Number: DE-BAYER-2020-153415

PATIENT
  Age: 82 Year
  Sex: Male

DRUGS (7)
  1. EYLEA [Suspect]
     Active Substance: AFLIBERCEPT
     Indication: Neovascular age-related macular degeneration
     Dosage: 50 UL, ONCE, LEFT EYE (OS), SOLUTION FOR INJECTION
     Route: 031
     Dates: start: 20200608, end: 20200608
  2. EYLEA [Suspect]
     Active Substance: AFLIBERCEPT
     Dosage: 50 UL, ONCE, LEFT EYE (OS), SOLUTION FOR INJECTION
     Route: 031
     Dates: start: 20200720, end: 20200720
  3. EYLEA [Suspect]
     Active Substance: AFLIBERCEPT
     Dosage: 50 UL, ONCE, LEFT EYE (OS), SOLUTION FOR INJECTION
     Route: 031
     Dates: start: 20210111, end: 20210111
  4. EYLEA [Suspect]
     Active Substance: AFLIBERCEPT
     Dosage: 50 UL, ONCE, LEFT EYE (OS), SOLUTION FOR INJECTION
     Route: 031
     Dates: start: 20210419, end: 20210419
  5. EYLEA [Suspect]
     Active Substance: AFLIBERCEPT
     Dosage: 50 UL, ONCE, LEFT EYE (OS), SOLUTION FOR INJECTION
     Route: 031
     Dates: start: 20210614, end: 20210614
  6. MARCUMAR [Concomitant]
     Active Substance: PHENPROCOUMON
     Indication: Product used for unknown indication
  7. ACULAR [Concomitant]
     Active Substance: KETOROLAC TROMETHAMINE
     Indication: Product used for unknown indication
     Dosage: 4 X LEFT
     Route: 061
     Dates: start: 20200721

REACTIONS (2)
  - Vitreous haemorrhage [Recovered/Resolved]
  - Vitreous haemorrhage [Recovered/Resolved]

NARRATIVE: CASE EVENT DATE: 20200721
